FAERS Safety Report 7710409-6 (Version None)
Quarter: 2011Q3

REPORT INFORMATION
  Report Type: 
  Country: None (occurrence: None)
  Receive Date: 20110825
  Receipt Date: 20110815
  Transmission Date: 20111222
  Serious: Yes (Hospitalization)
  Sender: FDA-Public Use
  Company Number: US-ELI_LILLY_AND_COMPANY-US200906006019

PATIENT
  Sex: Male

DRUGS (6)
  1. PANOXYL [Concomitant]
  2. BYETTA [Suspect]
     Dosage: 10 UG, BID
     Route: 058
     Dates: start: 20070601
  3. PREVACID [Concomitant]
     Dosage: 30 MG, BID
     Route: 048
  4. NOVOLIN R [Concomitant]
     Dosage: 100 UNK, UNK
  5. HUMULIN                            /00806401/ [Concomitant]
     Dosage: UNK
  6. AVANDIA [Concomitant]
     Dosage: 4 MG, UNK
     Route: 048

REACTIONS (3)
  - OFF LABEL USE [None]
  - PANCREATITIS ACUTE [None]
  - RENAL FAILURE [None]
